FAERS Safety Report 18035991 (Version 1)
Quarter: 2020Q3

REPORT INFORMATION
  Report Type: Spontaneous
  Country: US (occurrence: US)
  Receive Date: 20200717
  Receipt Date: 20200717
  Transmission Date: 20201103
  Serious: No
  Sender: FDA-Public Use
  Company Number: US-AUROBINDO-AUR-APL-2019-053386

PATIENT
  Sex: Male

DRUGS (1)
  1. VALACYCLOVIR HYDROCHLORIDE TABLETS 1G [Suspect]
     Active Substance: VALACYCLOVIR HYDROCHLORIDE
     Indication: HERPES ZOSTER
     Dosage: 1 GRAM, 3 TIMES A DAY, FOR 7 DAYS
     Route: 048
     Dates: start: 20190730, end: 20190806

REACTIONS (6)
  - Wrong technique in product usage process [Unknown]
  - Product use complaint [Unknown]
  - Foreign body in throat [Unknown]
  - Product coating issue [Unknown]
  - Product taste abnormal [Unknown]
  - Product size issue [Unknown]

NARRATIVE: CASE EVENT DATE: 20190730
